FAERS Safety Report 9099126 (Version 3)
Quarter: 2013Q1

REPORT INFORMATION
  Report Type: Spontaneous
  Country: JP (occurrence: JP)
  Receive Date: 20130214
  Receipt Date: 20130320
  Transmission Date: 20140127
  Serious: Yes (Life-Threatening)
  Sender: FDA-Public Use
  Company Number: JP-009507513-1302JPN005127

PATIENT
  Age: 74 Year
  Sex: Male

DRUGS (1)
  1. NU-LOTAN [Suspect]
     Indication: PROTEINURIA
     Dosage: 12.5 MG, ONCE A DAY
     Route: 048
     Dates: start: 20130118, end: 20130125

REACTIONS (4)
  - Renal failure [Not Recovered/Not Resolved]
  - Hyperkalaemia [Not Recovered/Not Resolved]
  - Sluggishness [None]
  - Dehydration [None]
